FAERS Safety Report 8890444 (Version 1)
Quarter: 2012Q4

REPORT INFORMATION
  Report Type: 
  Country: TR (occurrence: TR)
  Receive Date: 20121107
  Receipt Date: 20121107
  Transmission Date: 20130627
  Serious: Yes (Death, Other)
  Sender: FDA-Public Use
  Company Number: TR-ACCORD-015131

PATIENT

DRUGS (5)
  1. DOCETAXEL [Suspect]
     Indication: ADENOCARCINOMA GASTRIC
     Dosage: On day 1
     Route: 042
  2. G-CSF [Concomitant]
     Indication: PROPHYLAXIS
     Dosage: on days 3,4,5,6, and 7
     Route: 058
  3. CISPLATIN [Suspect]
     Indication: ADENOCARCINOMA GASTRIC
     Dosage: IV with hydration on day 1.
     Route: 042
  4. FLUOROURACIL [Suspect]
     Indication: ADENOCARCINOMA GASTRIC
     Dosage: 400 mg/m2 IV bolus and 2400 mg/m2 IV over 46 hrs on day 1
     Route: 042
  5. LEUCOVORIN [Concomitant]
     Indication: ADENOCARCINOMA GASTRIC
     Dosage: IV over 2 hrs on day 1.
     Route: 042

REACTIONS (5)
  - Myocardial infarction [Fatal]
  - Hypovolaemia [Unknown]
  - Nausea [Unknown]
  - Vomiting [Unknown]
  - Off label use [Unknown]
